FAERS Safety Report 6337032-2 (Version None)
Quarter: 2009Q3

REPORT INFORMATION
  Report Type: 
  Country: None (occurrence: None)
  Receive Date: 20090831
  Receipt Date: 20090819
  Transmission Date: 20100115
  Serious: Yes (Other)
  Sender: FDA-Public Use
  Company Number: 2009S1012044

PATIENT
  Age: 33 Year
  Sex: Female

DRUGS (2)
  1. AMNESTEEM [Suspect]
     Dosage: 40 MG; DAILY; ORAL
     Route: 048
     Dates: start: 20040701, end: 20090706
  2. SOTRET [Suspect]
     Dosage: 40 MG; DAILY; ORAL
     Route: 048
     Dates: start: 20060920, end: 20090101

REACTIONS (4)
  - DRUG EXPOSURE DURING PREGNANCY [None]
  - HAEMORRHAGE [None]
  - PREGNANCY [None]
  - TREATMENT NONCOMPLIANCE [None]
